FAERS Safety Report 23957496 (Version 1)
Quarter: 2024Q2

REPORT INFORMATION
  Report Type: Spontaneous
  Country: FR (occurrence: FR)
  Receive Date: 20240610
  Receipt Date: 20240610
  Transmission Date: 20240716
  Serious: Yes (Other)
  Sender: FDA-Public Use
  Company Number: FR-ELI_LILLY_AND_COMPANY-FR202405018980

PATIENT
  Age: 84 Year
  Sex: Female

DRUGS (3)
  1. CYMBALTA [Suspect]
     Active Substance: DULOXETINE HYDROCHLORIDE
     Indication: Pain
     Dosage: 1 DOSAGE FORM, UNKNOWN
     Route: 065
  2. CYMBALTA [Suspect]
     Active Substance: DULOXETINE HYDROCHLORIDE
     Dosage: 2 DOSAGE FORM, UNKNOWN
     Route: 065
  3. INSULIN NOS [Concomitant]
     Active Substance: INSULIN NOS
     Indication: Diabetes mellitus
     Dosage: UNK UNK, UNKNOWN
     Route: 065

REACTIONS (7)
  - Diabetes mellitus [Not Recovered/Not Resolved]
  - Drug intolerance [Unknown]
  - Nightmare [Not Recovered/Not Resolved]
  - Malaise [Unknown]
  - Fall [Not Recovered/Not Resolved]
  - Oropharyngeal pain [Unknown]
  - Anxiety [Unknown]
